FAERS Safety Report 15157491 (Version 4)
Quarter: 2019Q2

REPORT INFORMATION
  Report Type: Report from Study
  Country: CA (occurrence: CA)
  Receive Date: 20180718
  Receipt Date: 20190416
  Transmission Date: 20190711
  Serious: Yes (Other)
  Sender: FDA-Public Use
  Company Number: CA-BIOGEN-2018BI00609667

PATIENT
  Age: 51 Year
  Sex: Female

DRUGS (3)
  1. TECFIDERA [Suspect]
     Active Substance: DIMETHYL FUMARATE
     Indication: MULTIPLE SCLEROSIS
     Dosage: STARTING DOSE
     Route: 050
     Dates: start: 20150827, end: 20150902
  2. TECFIDERA [Suspect]
     Active Substance: DIMETHYL FUMARATE
     Dosage: MAINTENANCE DOSE
     Route: 050
     Dates: start: 20150903
  3. TECFIDERA [Suspect]
     Active Substance: DIMETHYL FUMARATE
     Route: 050

REACTIONS (4)
  - Lymphocyte percentage decreased [Unknown]
  - Aspartate aminotransferase increased [Unknown]
  - Blood creatinine decreased [Unknown]
  - Glycosylated haemoglobin increased [Not Recovered/Not Resolved]

NARRATIVE: CASE EVENT DATE: 20180704
